FAERS Safety Report 5533937-0 (Version None)
Quarter: 2007Q4

REPORT INFORMATION
  Report Type: 
  Country: None (occurrence: None)
  Receive Date: 20071129
  Receipt Date: 20071120
  Transmission Date: 20080405
  Serious: Yes (Other)
  Sender: FDA-Public Use
  Company Number: S07-USA-02787-01

PATIENT
  Age: 82 Year
  Sex: Female

DRUGS (6)
  1. TESSALON [Suspect]
     Indication: BRONCHITIS
     Dosage: 100 MG QID PO
     Route: 048
     Dates: start: 20070618, end: 20070622
  2. LABETOLOL [Concomitant]
  3. NORVASC [Concomitant]
  4. ZETIA [Concomitant]
  5. SYNTHROID [Concomitant]
  6. COQ10 [Concomitant]

REACTIONS (6)
  - CHOKING [None]
  - DYSPHAGIA [None]
  - DYSPHONIA [None]
  - DYSPNOEA [None]
  - PHARMACEUTICAL PRODUCT COMPLAINT [None]
  - PHARYNGEAL HYPOAESTHESIA [None]
